FAERS Safety Report 16237073 (Version 1)
Quarter: 2019Q2

REPORT INFORMATION
  Report Type: Spontaneous
  Country: GB (occurrence: GB)
  Receive Date: 20190425
  Receipt Date: 20190425
  Transmission Date: 20190711
  Serious: Yes (Hospitalization, Other)
  Sender: FDA-Public Use
  Company Number: GB-CIPLA LTD.-2019GB02377

PATIENT

DRUGS (2)
  1. ESCITALOPRAM [Suspect]
     Active Substance: ESCITALOPRAM OXALATE
     Indication: ANXIETY
     Dosage: 10 MILLIGRAM
     Route: 048
  2. ELLESTE-SOLO [Concomitant]
     Indication: HORMONE REPLACEMENT THERAPY
     Dosage: 80 MICROGRAM, QD (EVERY 24 HRS), TRANSDERMAL PATCH
     Route: 062

REACTIONS (2)
  - Bradyarrhythmia [Recovered/Resolved]
  - Circulatory collapse [Unknown]

NARRATIVE: CASE EVENT DATE: 20190110
